FAERS Safety Report 10170343 (Version 1)
Quarter: 2014Q2

REPORT INFORMATION
  Report Type: Report from Study
  Country: ES (occurrence: ES)
  Receive Date: 20140513
  Receipt Date: 20140513
  Transmission Date: 20141212
  Serious: Yes (Hospitalization)
  Sender: FDA-Public Use
  Company Number: ES-009507513-1405ESP005032

PATIENT
  Age: 82 Year
  Sex: Female

DRUGS (6)
  1. FOSAMAX SEMANAL 70 MG COMPRIMIDOS [Suspect]
     Indication: OSTEOPOROSIS
     Route: 048
     Dates: start: 200602, end: 201211
  2. DEFLAZACORT [Interacting]
     Indication: BRONCHIOLITIS
     Route: 048
     Dates: end: 20130210
  3. AMERIDE [Concomitant]
     Indication: HYPERTENSION
     Route: 048
     Dates: end: 20130315
  4. OMEPRAZOLE [Concomitant]
     Indication: PROPHYLAXIS
     Dosage: 20 MG, QD
     Route: 048
  5. VALSARTAN [Concomitant]
     Indication: HYPERTENSION
     Dosage: 160 MG, QD
     Route: 048
  6. ACETAMINOPHEN [Concomitant]
     Indication: PAIN
     Dosage: 1 G, QD
     Route: 048

REACTIONS (1)
  - Osteonecrosis [Recovered/Resolved with Sequelae]
